FAERS Safety Report 5330334-8 (Version None)
Quarter: 2007Q2

REPORT INFORMATION
  Report Type: 
  Country: None (occurrence: None)
  Receive Date: 20070521
  Receipt Date: 20070509
  Transmission Date: 20071010
  Serious: Yes (Life-Threatening, Hospitalization)
  Sender: FDA-Public Use
  Company Number: AT-PFIZER INC-2006061793

PATIENT
  Sex: Male
  Weight: 65 kg

DRUGS (4)
  1. SU-011,248 [Suspect]
     Indication: RENAL CELL CARCINOMA STAGE UNSPECIFIED
     Route: 048
     Dates: start: 20060301, end: 20060504
  2. DARBEPOETIN ALFA [Concomitant]
     Route: 030
  3. ENALAPRIL [Concomitant]
  4. DIAMICRON [Concomitant]
     Route: 048

REACTIONS (4)
  - BLOOD LACTATE DEHYDROGENASE INCREASED [None]
  - HYPERTENSIVE CRISIS [None]
  - PANCYTOPENIA [None]
  - PNEUMONIA [None]
